FAERS Safety Report 7094017-9 (Version None)
Quarter: 2010Q4

REPORT INFORMATION
  Report Type: 
  Country: None (occurrence: None)
  Receive Date: 20101110
  Receipt Date: 20101103
  Transmission Date: 20110411
  Serious: Yes (Hospitalization)
  Sender: FDA-Public Use
  Company Number: DE-ROCHE-739185

PATIENT
  Sex: Female
  Weight: 81 kg

DRUGS (6)
  1. BEVACIZUMAB [Suspect]
     Dosage: LAST ADMINISTRATION PRIOR TO THE EVENT ON 25 OCT 2010
     Route: 042
     Dates: start: 20100313
  2. PACLITAXEL [Suspect]
     Dosage: LAST ADMINISTRATION PRIOR TO THE EVENT ON 25 OCT 2010
     Route: 042
     Dates: start: 20100313
  3. DEXAMETHASONE [Concomitant]
     Dosage: LAST ADMINISTRATION PRIOR TO THE EVENT ON 25 OCT 2010
     Route: 042
     Dates: start: 20100313
  4. ZOFRAN [Concomitant]
     Dosage: LAST ADMINISTRATION PRIOR TO THE EVENT ON 25 OCT 2010
     Route: 042
     Dates: start: 20100313
  5. FENISTIL (DIMETINDENE) [Concomitant]
     Dosage: LAST ADMINISTRATION PRIOR TO THE EVENT ON 25 OCT 2010
     Route: 042
     Dates: start: 20100313
  6. H2 BLOCKER [Concomitant]
     Dosage: LAST ADMINISTRATION PRIOR TO THE EVENT ON 25 OCT 2010
     Route: 042
     Dates: start: 20100313

REACTIONS (2)
  - FEBRILE NEUTROPENIA [None]
  - GENERAL PHYSICAL HEALTH DETERIORATION [None]
